FAERS Safety Report 11934019 (Version 2)
Quarter: 2016Q1

REPORT INFORMATION
  Report Type: Report from Study
  Country: US (occurrence: US)
  Receive Date: 20160121
  Receipt Date: 20160210
  Transmission Date: 20160526
  Serious: Yes (Death)
  Sender: FDA-Public Use
  Company Number: PHEH2016US001470

PATIENT
  Age: 44 Year
  Sex: Female

DRUGS (1)
  1. ZOMETA [Suspect]
     Active Substance: ZOLEDRONIC ACID
     Indication: PRODUCT USED FOR UNKNOWN INDICATION
     Dosage: 4 MG, GIVEN OVER A MINIMUM OF 15 MINUTES EVERY 4 WEEKS
     Route: 042
     Dates: start: 20150618

REACTIONS (1)
  - Death [Fatal]

NARRATIVE: CASE EVENT DATE: 20151225
